FAERS Safety Report 8163734-1 (Version None)
Quarter: 2012Q1

REPORT INFORMATION
  Report Type: 
  Country: None (occurrence: None)
  Receive Date: 20120224
  Receipt Date: 20120215
  Transmission Date: 20120608
  Serious: Yes (Life-Threatening, Hospitalization)
  Sender: FDA-Public Use
  Company Number: DE-JNJFOC-20120207176

PATIENT
  Age: 47 Year
  Sex: Male

DRUGS (5)
  1. REMICADE [Suspect]
     Indication: CROHN'S DISEASE
     Route: 042
     Dates: start: 20120126
  2. ANTIHISTAMINES (UNSPECIFIED) [Concomitant]
     Indication: PREMEDICATION
     Route: 065
  3. H2 BLOCKER [Concomitant]
     Indication: PREMEDICATION
     Route: 065
  4. REMICADE [Suspect]
     Route: 042
     Dates: start: 20120202
  5. PREDNISOLONE SODIUM SUCCINATE INJ [Concomitant]
     Indication: PREMEDICATION
     Route: 065

REACTIONS (5)
  - INFUSION RELATED REACTION [None]
  - ARTERIOSPASM CORONARY [None]
  - URTICARIA [None]
  - DYSPNOEA [None]
  - ANGINA PECTORIS [None]
